FAERS Safety Report 7536385-7 (Version None)
Quarter: 2011Q2

REPORT INFORMATION
  Report Type: 
  Country: None (occurrence: None)
  Receive Date: 20110608
  Receipt Date: 20110608
  Transmission Date: 20111010
  Serious: Yes (Hospitalization)
  Sender: FDA-Public Use
  Company Number: None

PATIENT
  Sex: Male
  Weight: 95.3 kg

DRUGS (6)
  1. ZOFRAN [Concomitant]
  2. AMLOPDIPINE [Concomitant]
  3. ATENOLOL [Concomitant]
  4. AV-951 [Suspect]
     Indication: COLORECTAL CANCER
     Dosage: 1.0 MG QD FOR 3 WEEKS
     Dates: start: 20110303, end: 20110605
  5. TUSSINOEX [Concomitant]
  6. RAD001 EVEROLIMUS [Suspect]
     Indication: COLORECTAL CANCER
     Dosage: 10.0 MG QD
     Dates: start: 20110303, end: 20110605

REACTIONS (3)
  - CHEST PAIN [None]
  - ELECTROCARDIOGRAM T WAVE INVERSION [None]
  - ELECTROCARDIOGRAM ST SEGMENT DEPRESSION [None]
